FAERS Safety Report 17752739 (Version 2)
Quarter: 2021Q2

REPORT INFORMATION
  Report Type: Spontaneous
  Country: US (occurrence: US)
  Receive Date: 20200506
  Receipt Date: 20210505
  Transmission Date: 20210716
  Serious: No
  Sender: FDA-Public Use
  Company Number: US-ROCHE-2435802

PATIENT
  Sex: Male

DRUGS (12)
  1. TRULICITY [Concomitant]
     Active Substance: DULAGLUTIDE
  2. BENZONATATE. [Concomitant]
     Active Substance: BENZONATATE
  3. GUAIFENESIN/CODEINE [Concomitant]
     Active Substance: CODEINE PHOSPHATE\GUAIFENESIN
  4. PRIMIDONE. [Concomitant]
     Active Substance: PRIMIDONE
  5. LIPITOR [Concomitant]
     Active Substance: ATORVASTATIN CALCIUM
  6. ESBRIET [Suspect]
     Active Substance: PIRFENIDONE
     Indication: ABDOMINAL HERNIA OBSTRUCTIVE
     Dosage: TAKE ONE TABLET (801 MG) BY MOUTH 3 TIMES A DAY WITH MEALS
     Route: 048
  7. MELOXICAM. [Concomitant]
     Active Substance: MELOXICAM
  8. ASPIRIN. [Concomitant]
     Active Substance: ASPIRIN
  9. METFORMIN HCL [Concomitant]
     Active Substance: METFORMIN HYDROCHLORIDE
  10. VITAMIN D [ERGOCALCIFEROL] [Concomitant]
     Active Substance: ERGOCALCIFEROL
  11. NEXIUM [Concomitant]
     Active Substance: ESOMEPRAZOLE MAGNESIUM
  12. VITAMIN B12 [Concomitant]
     Active Substance: CYANOCOBALAMIN

REACTIONS (3)
  - No adverse event [Unknown]
  - Off label use [Unknown]
  - Intentional product use issue [Unknown]
